FAERS Safety Report 6698520-2 (Version None)
Quarter: 2010Q2

REPORT INFORMATION
  Report Type: 
  Country: None (occurrence: None)
  Receive Date: 20100426
  Receipt Date: 20100426
  Transmission Date: 20101027
  Serious: Yes (Life-Threatening, Hospitalization)
  Sender: FDA-Public Use
  Company Number: None

PATIENT
  Age: 54 Year
  Sex: Male
  Weight: 92.5338 kg

DRUGS (10)
  1. EVEROLIMUS [Suspect]
     Indication: METASTATIC MALIGNANT MELANOMA
     Dosage: 5MG, ORAL
     Route: 048
     Dates: start: 20100318, end: 20100416
  2. TAXOL [Suspect]
     Indication: METASTATIC MALIGNANT MELANOMA
     Dosage: 360MG IV
     Route: 042
     Dates: start: 20100318, end: 20100416
  3. CISPLATIN [Suspect]
     Indication: METASTATIC MALIGNANT MELANOMA
     Dosage: 1039MG IV
     Route: 042
     Dates: start: 20100318, end: 20100416
  4. METOPROLOL [Concomitant]
  5. DIGOXIN [Concomitant]
  6. METFORMIN [Concomitant]
  7. GLYBURIDE [Concomitant]
  8. ENALAPRIL MALEATE [Concomitant]
  9. SIMVASTATIN [Concomitant]
  10. TRICOR [Concomitant]

REACTIONS (3)
  - ANGIOEDEMA [None]
  - STRIDOR [None]
  - TONGUE OEDEMA [None]
